FAERS Safety Report 12654154 (Version 1)
Quarter: 2016Q3

REPORT INFORMATION
  Report Type: Spontaneous
  Country: US (occurrence: US)
  Receive Date: 20160816
  Receipt Date: 20160816
  Transmission Date: 20161109
  Serious: No
  Sender: FDA-Public Use
  Company Number: US-BAYER-2016-151966

PATIENT
  Sex: Female

DRUGS (2)
  1. CLARITIN REDITABS [Suspect]
     Active Substance: LORATADINE
     Indication: PRURITUS
  2. CLARITIN REDITABS [Suspect]
     Active Substance: LORATADINE
     Indication: ERYTHEMA
     Dosage: UNK

REACTIONS (3)
  - Drug ineffective for unapproved indication [None]
  - Drug ineffective [None]
  - Expired product administered [None]
